FAERS Safety Report 4624406-0 (Version None)
Quarter: 2005Q1

REPORT INFORMATION
  Report Type: 
  Country: None (occurrence: None)
  Receive Date: 20050330
  Receipt Date: 20050330
  Transmission Date: 20050727
  Serious: Yes (Other)
  Sender: FDA-Public Use
  Company Number: None

PATIENT
  Sex: Male
  Weight: 69.5818 kg

DRUGS (7)
  1. VELCADE [Suspect]
     Indication: MANTLE CELL LYMPHOMA
     Dosage: 2.3 MG   TWICE WEEKLY   INTRAVENOU
     Route: 042
     Dates: start: 20050222, end: 20050304
  2. ANZEMET [Concomitant]
  3. PRE-VELCADE GLIPIZIDE [Concomitant]
  4. GLUCOPHAGE [Concomitant]
  5. IBUPROFEN [Concomitant]
  6. MULTIVIT W/VITAMIN C [Concomitant]
  7. ALLOPURINOL [Concomitant]

REACTIONS (4)
  - BLOOD GLUCOSE DECREASED [None]
  - DIZZINESS [None]
  - HYPERHIDROSIS [None]
  - INFUSION RELATED REACTION [None]
